FAERS Safety Report 8410235-9 (Version None)
Quarter: 2012Q2

REPORT INFORMATION
  Report Type: 
  Country: None (occurrence: None)
  Receive Date: 20120605
  Receipt Date: 20120531
  Transmission Date: 20120825
  Serious: Yes (Other)
  Sender: FDA-Public Use
  Company Number: PHHY2012JP047326

PATIENT
  Age: 70 Year
  Sex: Male

DRUGS (1)
  1. ZOMETA [Suspect]
     Indication: PROSTATE CANCER METASTATIC
     Dosage: UNK UKN, UNK
     Route: 042
     Dates: start: 20101029, end: 20120302

REACTIONS (3)
  - OSTEONECROSIS OF JAW [None]
  - IMPAIRED HEALING [None]
  - EXPOSED BONE IN JAW [None]
